FAERS Safety Report 5089621-3 (Version None)
Quarter: 2006Q3

REPORT INFORMATION
  Report Type: 
  Country: None (occurrence: None)
  Receive Date: 20060822
  Receipt Date: 20060807
  Transmission Date: 20061208
  Serious: Yes (Other)
  Sender: FDA-Public Use
  Company Number: US200608001271

PATIENT
  Age: 46 Year
  Sex: Male

DRUGS (1)
  1. XIGRIS [Suspect]
     Indication: SEPTIC SHOCK
     Dosage: INTRAVENOUS
     Route: 042
     Dates: start: 20060721, end: 20060724

REACTIONS (2)
  - DISEASE RECURRENCE [None]
  - SEPSIS [None]
